FAERS Safety Report 8588604-6 (Version None)
Quarter: 2012Q3

REPORT INFORMATION
  Report Type: 
  Country: None (occurrence: None)
  Receive Date: 20120731
  Receipt Date: 20120720
  Transmission Date: 20120928
  Serious: Yes (Other)
  Sender: FDA-Public Use
  Company Number: DSA_58661_2012

PATIENT

DRUGS (7)
  1. DEXAMETHASONE [Concomitant]
  2. IRINOTECAN HCL [Suspect]
     Indication: COLORECTAL CANCER
     Dosage: (180 MG/M2 INTRAVENOUS (NOT OTHERWISE SPECIFIED))
     Route: 042
  3. BEVACIZUMAB (BEVACIZUMAB) [Suspect]
     Indication: COLORECTAL CANCER
     Dosage: (5MG/KG INTRAVENOUS (NOT OTHERWISE SPECIFIED))
     Route: 042
  4. GRANISETRON [Concomitant]
  5. ONDANSETRON HYDROCHLORIDE [Concomitant]
  6. FLUOROURACIL [Suspect]
     Indication: COLORECTAL CANCER
     Dosage: (400MG/M2 INTRAVENOUS BOLUS), (2,400MG/M2)
     Route: 040
  7. LEVOLEUCOVORIN CALCIUM [Suspect]
     Indication: COLORECTAL CANCER
     Dosage: (200MG/M2 INTRAVENOUS (NOT OTHERWISE SPECIFIED)
     Route: 042

REACTIONS (1)
  - STOMATITIS [None]
